FAERS Safety Report 7815484-6 (Version None)
Quarter: 2011Q4

REPORT INFORMATION
  Report Type: 
  Country: None (occurrence: None)
  Receive Date: 20111014
  Receipt Date: 20111007
  Transmission Date: 20120403
  Serious: Yes (Other)
  Sender: FDA-Public Use
  Company Number: PHHY2011US54825

PATIENT
  Sex: Female

DRUGS (14)
  1. GILENYA [Suspect]
     Indication: RELAPSING-REMITTING MULTIPLE SCLEROSIS
     Dosage: 0.5 MG, QD
     Route: 048
     Dates: start: 20110523
  2. WELLBUTRIN [Concomitant]
  3. VITAMIN D [Concomitant]
  4. LORAZEPAM [Concomitant]
  5. BONIVA [Concomitant]
  6. GILENYA [Suspect]
     Dosage: 0.5 MG, BID
     Dates: start: 20110622
  7. CALCIUM CARBONATE [Concomitant]
  8. MULTI-VITAMINS [Concomitant]
  9. CELEBREX [Concomitant]
  10. FISH OIL [Concomitant]
  11. FOLIC ACID [Concomitant]
  12. FAMPRIDINE [Concomitant]
     Indication: RELAPSING-REMITTING MULTIPLE SCLEROSIS
     Dosage: 10 MG, BID
     Route: 048
     Dates: start: 20110317
  13. NAPROSYN [Concomitant]
  14. DITROPAN [Concomitant]

REACTIONS (9)
  - FEELING ABNORMAL [None]
  - FALL [None]
  - ASTHENIA [None]
  - BALANCE DISORDER [None]
  - SENSATION OF HEAVINESS [None]
  - DEHYDRATION [None]
  - ACCIDENTAL OVERDOSE [None]
  - INSOMNIA [None]
  - GAIT DISTURBANCE [None]
